FAERS Safety Report 5264096-X (Version None)
Quarter: 2007Q1

REPORT INFORMATION
  Report Type: 
  Country: None (occurrence: None)
  Receive Date: 20070313
  Receipt Date: 20070228
  Transmission Date: 20070707
  Serious: Yes (Other)
  Sender: FDA-Public Use
  Company Number: US-ELI_LILLY_AND_COMPANY-US200608004547

PATIENT
  Sex: Female

DRUGS (2)
  1. CYMBALTA [Suspect]
     Indication: DEPRESSION
     Dosage: 90 MG, DAILY (1/D)
     Dates: start: 20051117
  2. TOPAMAX                                 /AUS/ [Concomitant]
     Dosage: 150 MG, DAILY (1/D)

REACTIONS (11)
  - ABNORMAL DREAMS [None]
  - AURA [None]
  - CONVULSION [None]
  - DIZZINESS [None]
  - FACIAL SPASM [None]
  - FATIGUE [None]
  - HALLUCINATION, VISUAL [None]
  - HEADACHE [None]
  - LOSS OF CONSCIOUSNESS [None]
  - NAUSEA [None]
  - VISION BLURRED [None]
